FAERS Safety Report 13581353 (Version 1)
Quarter: 2017Q2

REPORT INFORMATION
  Report Type: Spontaneous
  Country: US (occurrence: US)
  Receive Date: 20170525
  Receipt Date: 20170525
  Transmission Date: 20170830
  Serious: No
  Sender: FDA-Public Use
  Company Number: US-GLAXOSMITHKLINE-US2017GSK074116

PATIENT
  Sex: Female

DRUGS (2)
  1. NICOTINE TRANSDERMAL PATCH [Suspect]
     Active Substance: NICOTINE
     Indication: SMOKING CESSATION THERAPY
     Dosage: 21 MG, UNK
     Dates: start: 20160831
  2. NICOTINE TRANSDERMAL PATCH [Suspect]
     Active Substance: NICOTINE
     Dosage: 21 MG, UNK
     Dates: start: 20170430, end: 20170505

REACTIONS (8)
  - Application site pruritus [Recovered/Resolved]
  - Application site rash [Recovered/Resolved]
  - Fatigue [Not Recovered/Not Resolved]
  - Application site urticaria [Recovering/Resolving]
  - Chest pain [Unknown]
  - Nightmare [Unknown]
  - Application site erythema [Recovered/Resolved]
  - Blood pressure increased [Unknown]

NARRATIVE: CASE EVENT DATE: 20170504
